FAERS Safety Report 17242980 (Version 1)
Quarter: 2020Q1

REPORT INFORMATION
  Report Type: Spontaneous
  Country: DE (occurrence: DE)
  Receive Date: 20200107
  Receipt Date: 20200107
  Transmission Date: 20200409
  Serious: Yes (Other)
  Sender: FDA-Public Use
  Company Number: DE-SAMSUNG BIOEPIS-SB-2019-40157

PATIENT
  Age: 5 Year
  Sex: Female
  Weight: 73 kg

DRUGS (2)
  1. BENEPALI [Suspect]
     Active Substance: ETANERCEPT
     Indication: JUVENILE IDIOPATHIC ARTHRITIS
     Dosage: 6. GABE
     Route: 058
     Dates: start: 20190905
  2. NAPROXEN. [Concomitant]
     Active Substance: NAPROXEN
     Indication: JUVENILE IDIOPATHIC ARTHRITIS
     Dosage: DAILY DOSE: 500 MG MILLGRAM(S) EVERY DAYS 2 SEPARATED DOSES
     Route: 048

REACTIONS (4)
  - Skin reaction [Recovering/Resolving]
  - Blister [Recovering/Resolving]
  - Pain of skin [Recovering/Resolving]
  - Flushing [Recovering/Resolving]

NARRATIVE: CASE EVENT DATE: 20190906
